FAERS Safety Report 11445862 (Version 1)
Quarter: 2015Q3

REPORT INFORMATION
  Report Type: Spontaneous
  Country: US (occurrence: US)
  Receive Date: 20150831
  Receipt Date: 20150831
  Transmission Date: 20151125
  Serious: No
  Sender: FDA-Public Use
  Company Number: US-ELI_LILLY_AND_COMPANY-US200710000342

PATIENT
  Age: 53 Year
  Sex: Female

DRUGS (13)
  1. ADVAIR HFA [Concomitant]
     Active Substance: FLUTICASONE PROPIONATE\SALMETEROL XINAFOATE
  2. ZETIA [Concomitant]
     Active Substance: EZETIMIBE
  3. CYMBALTA [Suspect]
     Active Substance: DULOXETINE HYDROCHLORIDE
     Dosage: 40 MG, DAILY (1/D)
     Route: 048
  4. TRANZINE [Concomitant]
     Active Substance: CHLORPROMAZINE HYDROCHLORIDE
     Indication: ANXIETY
     Dosage: 15 MG, DAILY (1/D)
  5. ALBUTEROL. [Concomitant]
     Active Substance: ALBUTEROL
  6. CYMBALTA [Suspect]
     Active Substance: DULOXETINE HYDROCHLORIDE
     Indication: DEPRESSION
     Dosage: 30 MG, DAILY (1/D)
     Route: 048
     Dates: start: 2006
  7. LAMICTAL [Concomitant]
     Active Substance: LAMOTRIGINE
  8. GEODON [Concomitant]
     Active Substance: ZIPRASIDONE HYDROCHLORIDE\ZIPRASIDONE MESYLATE
  9. TRICOR [Concomitant]
     Active Substance: FENOFIBRATE
  10. LISINOPRIL. [Concomitant]
     Active Substance: LISINOPRIL
  11. FLEXERIL [Concomitant]
     Active Substance: CYCLOBENZAPRINE HYDROCHLORIDE
  12. FLOVENT [Concomitant]
     Active Substance: FLUTICASONE PROPIONATE
  13. SINGULAIR /SCH/ [Concomitant]

REACTIONS (7)
  - Anxiety [Not Recovered/Not Resolved]
  - Disturbance in attention [Not Recovered/Not Resolved]
  - Hallucination [Not Recovered/Not Resolved]
  - Menopause [Not Recovered/Not Resolved]
  - Dizziness [Not Recovered/Not Resolved]
  - Speech disorder [Not Recovered/Not Resolved]
  - Malaise [Not Recovered/Not Resolved]

NARRATIVE: CASE EVENT DATE: 2007
